FAERS Safety Report 10235362 (Version 1)
Quarter: 2014Q2

REPORT INFORMATION
  Report Type: Spontaneous
  Country: US (occurrence: None)
  Receive Date: 20140612
  Receipt Date: 20140612
  Transmission Date: 20141212
  Serious: No
  Sender: FDA-Public Use
  Company Number: None

PATIENT
  Age: 37 Year
  Sex: Female
  Weight: 66.68 kg

DRUGS (1)
  1. SODIUM TETRADECYL SULFATE [Suspect]
     Indication: SPIDER VEIN
     Dates: start: 20140512, end: 20140512

REACTIONS (6)
  - Pruritus [None]
  - Rash erythematous [None]
  - Urticaria [None]
  - Dysstasia [None]
  - Muscle twitching [None]
  - Muscle spasms [None]
